FAERS Safety Report 25114805 (Version 1)
Quarter: 2025Q1

REPORT INFORMATION
  Report Type: Spontaneous
  Country: CA (occurrence: None)
  Receive Date: 20250324
  Receipt Date: 20250324
  Transmission Date: 20250408
  Serious: Yes (Other)
  Sender: FDA-CTU
  Company Number: None

PATIENT
  Age: 68 Year
  Sex: Female

DRUGS (16)
  1. RISEDRONATE SODIUM [Suspect]
     Active Substance: RISEDRONATE SODIUM
     Indication: Osteoporosis
     Route: 048
     Dates: start: 20241125, end: 20241202
  2. VYZULTA [Concomitant]
     Active Substance: LATANOPROSTENE BUNOD
  3. AZOPT [Concomitant]
     Active Substance: BRINZOLAMIDE
  4. VENLAFAXINE [Concomitant]
     Active Substance: VENLAFAXINE HYDROCHLORIDE
  5. MINT-QUETIAPINE [Concomitant]
  6. TRELEGY ELLIPTA [Concomitant]
     Active Substance: FLUTICASONE FUROATE\UMECLIDINIUM BROMIDE\VILANTEROL TRIFENATATE
  7. SANDOZ-ROSUVASTATIN [Concomitant]
  8. MOMETASONE FUROATE [Concomitant]
     Active Substance: MOMETASONE FUROATE
  9. ALEVE [Concomitant]
     Active Substance: NAPROXEN SODIUM
  10. VITAMIN E [Concomitant]
     Active Substance: .ALPHA.-TOCOPHEROL
  11. VITAMIN A [Concomitant]
     Active Substance: VITAMIN A
  12. VITAMIN D [Concomitant]
     Active Substance: VITAMIN D NOS
  13. VITAMIN B6/B12 [Concomitant]
  14. BIOTIN [Concomitant]
     Active Substance: BIOTIN
  15. CALTRATE WITH VITAMIN D [Concomitant]
     Active Substance: CALCIUM CARBONATE\CHOLECALCIFEROL
  16. CELADRIN [Concomitant]
     Active Substance: MENTHOL

REACTIONS (2)
  - Intraocular pressure increased [None]
  - Product label issue [None]

NARRATIVE: CASE EVENT DATE: 20241206
